FAERS Safety Report 20919641 (Version 3)
Quarter: 2022Q3

REPORT INFORMATION
  Report Type: Report from Study
  Country: US (occurrence: US)
  Receive Date: 20220606
  Receipt Date: 20220712
  Transmission Date: 20221027
  Serious: Yes (Death, Hospitalization)
  Sender: FDA-Public Use
  Company Number: US-ABBVIE-22P-163-4376881-00

PATIENT
  Age: 72 Year
  Sex: Male
  Weight: 78.5 kg

DRUGS (11)
  1. IBRUTINIB [Suspect]
     Active Substance: IBRUTINIB
     Indication: Chronic lymphocytic leukaemia
     Dosage: FOR 15 CYCLES, CYCLE=28 DAYS
     Route: 048
     Dates: start: 20211216
  2. IBRUTINIB [Suspect]
     Active Substance: IBRUTINIB
     Dosage: CYCLE 4
     Route: 048
     Dates: start: 20220310, end: 20220406
  3. VENETOCLAX [Suspect]
     Active Substance: VENETOCLAX
     Indication: Chronic lymphocytic leukaemia
     Dosage: DAYS 1-7 CYCLE 3
     Route: 048
     Dates: start: 20220210
  4. VENETOCLAX [Suspect]
     Active Substance: VENETOCLAX
     Dosage: DAYS 8-14 CYCLE 3
     Route: 048
  5. VENETOCLAX [Suspect]
     Active Substance: VENETOCLAX
     Dosage: DAYS 15-21 CYCLE 3
     Route: 048
  6. VENETOCLAX [Suspect]
     Active Substance: VENETOCLAX
     Dosage: DAYS 22-28, CYCLE 3
     Route: 048
  7. VENETOCLAX [Suspect]
     Active Substance: VENETOCLAX
     Dosage: DAYS 1-28, CYCLES 4-14
     Route: 048
     Dates: start: 20220310, end: 20220406
  8. OBINUTUZUMAB [Concomitant]
     Active Substance: OBINUTUZUMAB
     Indication: Chronic lymphocytic leukaemia
     Dosage: C1D1
     Route: 042
     Dates: start: 20211216
  9. OBINUTUZUMAB [Concomitant]
     Active Substance: OBINUTUZUMAB
     Dosage: C1D2
     Route: 042
  10. OBINUTUZUMAB [Concomitant]
     Active Substance: OBINUTUZUMAB
     Dosage: C1D8 + C1D15, C2-6D1
     Route: 042
     Dates: end: 20220310
  11. HUMAN RED BLOOD CELL [Concomitant]
     Active Substance: HUMAN RED BLOOD CELL
     Indication: Product used for unknown indication
     Dates: start: 20220329

REACTIONS (2)
  - Bone marrow failure [Fatal]
  - Anaemia [Unknown]

NARRATIVE: CASE EVENT DATE: 20220406
